FAERS Safety Report 14981548 (Version 2)
Quarter: 2021Q3

REPORT INFORMATION
  Report Type: Spontaneous
  Country: US (occurrence: US)
  Receive Date: 20180607
  Receipt Date: 20210708
  Transmission Date: 20211014
  Serious: No
  Sender: FDA-Public Use
  Company Number: US-ELI_LILLY_AND_COMPANY-US201806001636

PATIENT
  Sex: Male

DRUGS (7)
  1. HUMALOG [Suspect]
     Active Substance: INSULIN LISPRO
     Dosage: 2 U, BID
     Route: 058
     Dates: end: 2018
  2. INSULIN LISPRO LILLY [Suspect]
     Active Substance: INSULIN LISPRO
     Indication: TYPE 2 DIABETES MELLITUS
     Dosage: 8 U, TID
     Route: 058
     Dates: start: 2018
  3. HUMALOG [Suspect]
     Active Substance: INSULIN LISPRO
     Indication: TYPE 2 DIABETES MELLITUS
     Dosage: 6 U, BID
     Route: 058
     Dates: start: 2013
  4. LANTUS [Concomitant]
     Active Substance: INSULIN GLARGINE
     Indication: TYPE 2 DIABETES MELLITUS
     Dosage: 32 U, EACH EVENING (EACH NIGHT)
     Route: 065
  5. GLUCOVANCE [GLIBENCLAMIDE;METFORMIN HYDROCHLO [Concomitant]
     Indication: TYPE 2 DIABETES MELLITUS
     Dosage: 2 DF, DAILY
     Route: 065
  6. HUMALOG [Suspect]
     Active Substance: INSULIN LISPRO
     Indication: TYPE 2 DIABETES MELLITUS
     Dosage: 6 U, BID
     Route: 058
     Dates: start: 2013
  7. HUMALOG [Suspect]
     Active Substance: INSULIN LISPRO
     Dosage: 2 U, BID
     Route: 058
     Dates: end: 2018

REACTIONS (5)
  - Blood glucose decreased [Unknown]
  - Blood glucose increased [Recovered/Resolved]
  - Blood glucose increased [Recovered/Resolved]
  - Product dose omission issue [Unknown]
  - Incorrect product administration duration [Recovered/Resolved]

NARRATIVE: CASE EVENT DATE: 2018
